FAERS Safety Report 4951430-0 (Version None)
Quarter: 2006Q1

REPORT INFORMATION
  Report Type: 
  Country: None (occurrence: None)
  Receive Date: 20060323
  Receipt Date: 20060313
  Transmission Date: 20060701
  Serious: No
  Sender: FDA-Public Use
  Company Number: JP-JNJFOC-20050201062

PATIENT
  Age: 79 Year
  Sex: Male

DRUGS (3)
  1. OFLOCET [Suspect]
     Indication: BRONCHITIS
     Route: 048
     Dates: start: 20050107, end: 20050117
  2. OFLOCET [Suspect]
     Indication: PNEUMONIA
     Route: 048
     Dates: start: 20050107, end: 20050117
  3. MUCOMYST [Concomitant]
     Indication: BRONCHITIS
     Route: 048
     Dates: start: 20050107, end: 20050117

REACTIONS (1)
  - MYALGIA [None]
